FAERS Safety Report 9595840 (Version 1)
Quarter: 2013Q4

REPORT INFORMATION
  Report Type: Spontaneous
  Country: DE (occurrence: DE)
  Receive Date: 20131004
  Receipt Date: 20131004
  Transmission Date: 20140711
  Serious: Yes (Other)
  Sender: FDA-Public Use
  Company Number: DE-VERTEX PHARMACEUTICALS INC-2013-010164

PATIENT
  Sex: 0

DRUGS (8)
  1. INCIVO [Suspect]
     Indication: HEPATITIS C
     Dosage: 3 OF 375 MG CAPSULES IN THE MORNING AND IN THE EVENING
     Route: 048
  2. PEG INTERFERON [Suspect]
     Indication: HEPATITIS C
     Dosage: DOSAGE FORM: UNSPECIFIED
     Route: 065
  3. RIBAVIRIN [Suspect]
     Indication: HEPATITIS C
     Dosage: DOSAGE FORM: UNSPECIFIED
     Route: 065
  4. RIBAVIRIN [Suspect]
     Dosage: DOSAGE FORM: UNSPECIFIED
     Route: 065
  5. TACROLIMUS [Suspect]
     Indication: IMMUNOSUPPRESSION
     Dosage: DOSAGE FORM: UNSPECIFIED
     Route: 065
  6. TACROLIMUS [Suspect]
     Dosage: DOSAGE FORM: UNSPECIFIED
     Route: 065
  7. CYCLOSPORINE [Suspect]
     Indication: IMMUNOSUPPRESSION
     Dosage: DOSAGE FORM: UNSPECIFIED
     Route: 065
  8. CYCLOSPORINE [Suspect]
     Dosage: DOSAGE FORM: UNSPECIFIED, BID OR QD
     Route: 065

REACTIONS (17)
  - Blood glucose increased [Unknown]
  - Leukopenia [Unknown]
  - Renal impairment [Unknown]
  - Anaemia [Unknown]
  - Thrombocytopenia [Unknown]
  - Rash [Unknown]
  - Weight decreased [Unknown]
  - Decreased appetite [Unknown]
  - Pyrexia [Unknown]
  - Stomatitis [Unknown]
  - Ageusia [Unknown]
  - Off label use [Unknown]
  - Oedema [Unknown]
  - Diarrhoea [Unknown]
  - Pruritus [Unknown]
  - Anorectal discomfort [Unknown]
  - Treatment failure [Unknown]
